FAERS Safety Report 4710956-5 (Version None)
Quarter: 2005Q3

REPORT INFORMATION
  Report Type: 
  Country: None (occurrence: None)
  Receive Date: 20050711
  Receipt Date: 20050704
  Transmission Date: 20060218
  Serious: Yes (Hospitalization, Congenital Anomaly)
  Sender: FDA-Public Use
  Company Number: PHFR2005GB02322

PATIENT
  Sex: Male
  Weight: 3 kg

DRUGS (2)
  1. TEGRETOL [Suspect]
     Route: 064
  2. KEPPRA [Suspect]
     Route: 064

REACTIONS (2)
  - ARTERIAL THROMBOSIS [None]
  - DRUG EXPOSURE DURING PREGNANCY [None]
